FAERS Safety Report 8932423 (Version 4)
Quarter: 2013Q1

REPORT INFORMATION
  Report Type: Report from Study
  Country: GB (occurrence: GB)
  Receive Date: 20121128
  Receipt Date: 20130114
  Transmission Date: 20140127
  Serious: Yes (Hospitalization)
  Sender: FDA-Public Use
  Company Number: GB-JNJFOC-20121110298

PATIENT
  Age: 16 Year
  Sex: Male
  Weight: 51.5 kg

DRUGS (5)
  1. REMICADE [Suspect]
     Indication: CROHN^S DISEASE
     Route: 042
     Dates: start: 20120803
  2. AZATHIOPRINE [Concomitant]
  3. BUSCOPAN [Concomitant]
  4. ONDANSETRON [Concomitant]
  5. PARACETAMOL [Concomitant]

REACTIONS (1)
  - Crohn^s disease [Recovered/Resolved]
